FAERS Safety Report 6703777-5 (Version None)
Quarter: 2010Q2

REPORT INFORMATION
  Report Type: 
  Country: None (occurrence: None)
  Receive Date: 20100430
  Receipt Date: 20100423
  Transmission Date: 20101027
  Serious: Yes (Life-Threatening, Hospitalization, Other)
  Sender: FDA-Public Use
  Company Number: FR-ELI_LILLY_AND_COMPANY-FR201004006172

PATIENT
  Sex: Female

DRUGS (17)
  1. HUMALOG [Suspect]
     Dosage: UNK, UNKNOWN
     Route: 058
     Dates: start: 20100219
  2. AUGMENTIN '125' [Concomitant]
     Dosage: UNK, UNKNOWN
     Route: 042
     Dates: end: 20100302
  3. MOPRAL [Concomitant]
     Dosage: 40 MG, DAILY (1/D)
     Route: 042
     Dates: start: 20100219, end: 20100302
  4. CANCIDAS [Concomitant]
     Dosage: 50 MG, DAILY (1/D)
     Route: 042
     Dates: start: 20100222, end: 20100225
  5. SUFENTA PRESERVATIVE FREE [Concomitant]
     Dosage: UNK, UNKNOWN
     Route: 042
     Dates: start: 20100219, end: 20100302
  6. ACUPAN [Concomitant]
     Dosage: UNK, UNKNOWN
     Route: 042
     Dates: start: 20100220, end: 20100221
  7. ATARAX [Concomitant]
     Dosage: 60 MG, DAILY (1/D)
     Route: 042
     Dates: start: 20100220, end: 20100220
  8. LOVENOX [Concomitant]
     Dosage: UNK, UNKNOWN
     Route: 058
     Dates: start: 20100220, end: 20100226
  9. GENTALLINE [Concomitant]
     Dosage: 300 MG, DAILY (1/D)
     Route: 042
     Dates: start: 20100222, end: 20100223
  10. NIMBEX [Concomitant]
     Dosage: UNK, UNKNOWN
     Route: 042
     Dates: start: 20100222, end: 20100224
  11. VECTARION [Concomitant]
     Dosage: UNK, UNKNOWN
     Route: 042
     Dates: start: 20100222, end: 20100224
  12. ACTRAPID                           /00030501/ [Concomitant]
     Dates: start: 20100219, end: 20100219
  13. ROCURONIUM BROMIDE [Concomitant]
     Dosage: 170 MG, UNKNOWN
     Route: 042
     Dates: start: 20100219, end: 20100219
  14. HYPNOVEL [Concomitant]
     Dosage: 1 MG, UNKNOWN
     Route: 042
     Dates: start: 20100219, end: 20100219
  15. PROPOFOL [Concomitant]
     Dosage: UNK, UNKNOWN
     Route: 042
     Dates: start: 20100219, end: 20100302
  16. KETAMINE [Concomitant]
     Dosage: UNK, UNKNOWN
     Route: 042
     Dates: start: 20100219, end: 20100219
  17. EPHEDRINE [Concomitant]
     Dosage: UNK, UNKNOWN
     Route: 042
     Dates: start: 20100219, end: 20100219

REACTIONS (6)
  - BACTERAEMIA [None]
  - PLEURAL EFFUSION [None]
  - RENAL FAILURE [None]
  - RESPIRATORY DISTRESS [None]
  - SEPTIC SHOCK [None]
  - STEVENS-JOHNSON SYNDROME [None]
